FAERS Safety Report 14144793 (Version 2)
Quarter: 2018Q1

REPORT INFORMATION
  Report Type: Spontaneous
  Country: IN (occurrence: IN)
  Receive Date: 20171031
  Receipt Date: 20180313
  Transmission Date: 20180508
  Serious: Yes (Hospitalization, Other)
  Sender: FDA-Public Use
  Company Number: IN-LUPIN PHARMACEUTICALS INC.-2017-06281

PATIENT
  Sex: Male

DRUGS (6)
  1. TOPIRAMATE. [Suspect]
     Active Substance: TOPIRAMATE
     Dosage: 25 MG, BID
     Route: 065
  2. TOPIRAMATE. [Suspect]
     Active Substance: TOPIRAMATE
     Indication: DRUG WITHDRAWAL CONVULSIONS
     Dosage: UNK
     Route: 065
  3. LORAZEPAM. [Concomitant]
     Active Substance: LORAZEPAM
     Indication: DRUG WITHDRAWAL CONVULSIONS
     Dosage: 6 MG, QD
     Route: 065
  4. LEVETIRACETAM. [Concomitant]
     Active Substance: LEVETIRACETAM
     Indication: DRUG WITHDRAWAL CONVULSIONS
     Dosage: UNK
     Route: 065
  5. LORAZEPAM. [Concomitant]
     Active Substance: LORAZEPAM
     Indication: ALCOHOLISM
  6. TOPIRAMATE. [Suspect]
     Active Substance: TOPIRAMATE
     Dosage: DOSE TAPERED
     Route: 065

REACTIONS (1)
  - Drug-induced liver injury [Recovering/Resolving]
